FAERS Safety Report 7035717-6 (Version None)
Quarter: 2010Q4

REPORT INFORMATION
  Report Type: 
  Country: None (occurrence: None)
  Receive Date: 20101008
  Receipt Date: 20100930
  Transmission Date: 20110411
  Serious: Yes (Other)
  Sender: FDA-Public Use
  Company Number: DE-NAPPMUNDI-DEU-2010-0006598

PATIENT
  Age: 52 Year
  Sex: Male

DRUGS (2)
  1. OXYGESIC 40 MG [Suspect]
     Indication: ARTHRALGIA
     Dosage: 80 MG, BID
     Route: 048
     Dates: start: 20000101, end: 20080101
  2. OXYCODON [Suspect]
     Indication: ARTHRALGIA
     Dosage: 80 MG, BID
     Dates: start: 20080101

REACTIONS (3)
  - JAW DISORDER [None]
  - PERIODONTITIS [None]
  - TOOTH LOSS [None]
